FAERS Safety Report 9713669 (Version 2)
Quarter: 2013Q4

REPORT INFORMATION
  Report Type: Report from Study
  Country: IT (occurrence: IT)
  Receive Date: 20131126
  Receipt Date: 20131218
  Transmission Date: 20140711
  Serious: Yes (Death, Hospitalization)
  Sender: FDA-Public Use
  Company Number: IT-ELI_LILLY_AND_COMPANY-IT201311004837

PATIENT
  Age: 71 Year
  Sex: 0

DRUGS (1)
  1. PEMETREXED [Suspect]
     Indication: PRODUCT USED FOR UNKNOWN INDICATION
     Dosage: UNK
     Dates: start: 20131008

REACTIONS (2)
  - Death [Fatal]
  - General physical health deterioration [Unknown]
